FAERS Safety Report 24809252 (Version 1)
Quarter: 2025Q1

REPORT INFORMATION
  Report Type: Spontaneous
  Country: SE (occurrence: SE)
  Receive Date: 20250106
  Receipt Date: 20250106
  Transmission Date: 20250408
  Serious: Yes (Other)
  Sender: CELLTRION
  Company Number: SE-ROCHE-3182330

PATIENT

DRUGS (15)
  1. RITUXIMAB [Interacting]
     Active Substance: RITUXIMAB
     Indication: Rheumatic disorder
     Route: 065
  2. RITUXIMAB [Interacting]
     Active Substance: RITUXIMAB
     Indication: Sjogren^s syndrome
     Route: 042
  3. RITUXIMAB [Interacting]
     Active Substance: RITUXIMAB
     Indication: Rheumatoid arthritis
     Route: 042
     Dates: start: 20210104
  4. RITUXIMAB [Interacting]
     Active Substance: RITUXIMAB
     Route: 042
     Dates: start: 20210423
  5. RITUXIMAB [Interacting]
     Active Substance: RITUXIMAB
     Route: 042
     Dates: start: 20220114
  6. TOZINAMERAN [Interacting]
     Active Substance: TOZINAMERAN
     Indication: COVID-19 prophylaxis
     Route: 065
     Dates: start: 20210503
  7. TOZINAMERAN [Interacting]
     Active Substance: TOZINAMERAN
     Route: 065
     Dates: start: 20210617
  8. TOZINAMERAN [Interacting]
     Active Substance: TOZINAMERAN
     Route: 065
     Dates: start: 20211016
  9. METHOTREXATE [Suspect]
     Active Substance: METHOTREXATE
     Indication: Rheumatoid arthritis
  10. METHOTREXATE [Suspect]
     Active Substance: METHOTREXATE
     Indication: Sjogren^s syndrome
  11. PREDNISOLONE [Suspect]
     Active Substance: PREDNISOLONE
     Indication: Rheumatoid arthritis
     Route: 065
  12. PREDNISOLONE [Suspect]
     Active Substance: PREDNISOLONE
     Indication: Sjogren^s syndrome
     Route: 065
  13. ETANERCEPT [Suspect]
     Active Substance: ETANERCEPT
     Indication: Rheumatoid arthritis
     Route: 065
  14. ETANERCEPT [Suspect]
     Active Substance: ETANERCEPT
     Indication: Sjogren^s syndrome
  15. LEVOTHYROXINE SODIUM [Concomitant]
     Active Substance: LEVOTHYROXINE SODIUM
     Indication: Hypothyroidism

REACTIONS (5)
  - COVID-19 [Unknown]
  - Drug interaction [Unknown]
  - Vaccine interaction [Unknown]
  - Vaccination failure [Not Recovered/Not Resolved]
  - Intentional product use issue [Unknown]
